FAERS Safety Report 13671526 (Version 12)
Quarter: 2019Q2

REPORT INFORMATION
  Report Type: Report from Study
  Country: US (occurrence: US)
  Receive Date: 20170620
  Receipt Date: 20190617
  Transmission Date: 20190711
  Serious: Yes (Hospitalization, Other)
  Sender: FDA-Public Use
  Company Number: US-ACTELION-A-NJ2017-155432

PATIENT
  Age: 55 Year
  Sex: Male
  Weight: 136.05 kg

DRUGS (7)
  1. ADEMPAS [Suspect]
     Active Substance: RIOCIGUAT
     Dosage: 0.5 MG, TID
     Route: 048
  2. OXYGEN. [Concomitant]
     Active Substance: OXYGEN
  3. UPTRAVI [Suspect]
     Active Substance: SELEXIPAG
     Indication: PULMONARY ARTERIAL HYPERTENSION
     Dosage: 1600 MCG, BID
     Route: 048
  4. UPTRAVI [Suspect]
     Active Substance: SELEXIPAG
     Dosage: UNK
     Route: 048
  5. ADEMPAS [Suspect]
     Active Substance: RIOCIGUAT
     Indication: PRODUCT USED FOR UNKNOWN INDICATION
     Route: 065
  6. ELIQUIS [Concomitant]
     Active Substance: APIXABAN
  7. OPSUMIT [Suspect]
     Active Substance: MACITENTAN
     Indication: PULMONARY ARTERIAL HYPERTENSION
     Dosage: 10 MG, QD
     Route: 048

REACTIONS (28)
  - Cardiac operation [Unknown]
  - Rhinorrhoea [Unknown]
  - Fluid retention [Unknown]
  - Hypersensitivity [Unknown]
  - Surgery [Unknown]
  - Sepsis [Unknown]
  - Pneumonia [Unknown]
  - Fluid overload [Unknown]
  - Diarrhoea [Unknown]
  - Fatigue [Unknown]
  - Dialysis [Unknown]
  - Nasal disorder [Unknown]
  - Multiple allergies [Unknown]
  - Weight decreased [Unknown]
  - Diverticulitis [Unknown]
  - Heat exhaustion [Unknown]
  - Decreased appetite [Recovering/Resolving]
  - Headache [Unknown]
  - Device issue [Unknown]
  - Endocarditis bacterial [Unknown]
  - Nausea [Unknown]
  - Renal disorder [Unknown]
  - Dyspnoea [Unknown]
  - Atrial fibrillation [Unknown]
  - Osteoarthritis [Unknown]
  - Unevaluable event [Unknown]
  - Gastrooesophageal reflux disease [Unknown]
  - Malaise [Unknown]

NARRATIVE: CASE EVENT DATE: 201804
